FAERS Safety Report 23918760 (Version 1)
Quarter: 2024Q2

REPORT INFORMATION
  Report Type: Report from Study
  Country: CA (occurrence: CA)
  Receive Date: 20240530
  Receipt Date: 20240530
  Transmission Date: 20240716
  Serious: Yes (Other)
  Sender: FDA-Public Use
  Company Number: CA-JNJFOC-20240463399

PATIENT
  Age: 43 Year
  Sex: Female
  Weight: 87 kg

DRUGS (1)
  1. SIMPONI [Suspect]
     Active Substance: GOLIMUMAB
     Indication: Psoriatic arthropathy
     Route: 058
     Dates: start: 20240315

REACTIONS (7)
  - Hernia [Unknown]
  - Fatigue [Unknown]
  - Nausea [Unknown]
  - Pharyngitis [Recovering/Resolving]
  - Productive cough [Unknown]
  - Aphonia [Unknown]
  - Inappropriate schedule of product administration [Unknown]

NARRATIVE: CASE EVENT DATE: 20240101
